FAERS Safety Report 6927942-7 (Version None)
Quarter: 2010Q3

REPORT INFORMATION
  Report Type: 
  Country: None (occurrence: None)
  Receive Date: 20100817
  Receipt Date: 20100804
  Transmission Date: 20110219
  Serious: Yes (Hospitalization, Other)
  Sender: FDA-Public Use
  Company Number: US-ELI_LILLY_AND_COMPANY-US201008001509

PATIENT
  Sex: Female

DRUGS (2)
  1. HUMULIN R [Suspect]
     Indication: TYPE 2 DIABETES MELLITUS
     Dosage: UNK, UNK
  2. HUMULIN R [Suspect]
     Dosage: UNK, UNK

REACTIONS (7)
  - BLOOD COUNT ABNORMAL [None]
  - HAEMOGLOBIN DECREASED [None]
  - HEPATIC CIRRHOSIS [None]
  - LIVER DISORDER [None]
  - LOCALISED INTRAABDOMINAL FLUID COLLECTION [None]
  - MOBILITY DECREASED [None]
  - OEDEMA PERIPHERAL [None]
